FAERS Safety Report 8850253 (Version 2)
Quarter: 2014Q3

REPORT INFORMATION
  Report Type: Spontaneous
  Country: US (occurrence: US)
  Receive Date: 20121019
  Receipt Date: 20140731
  Transmission Date: 20150326
  Serious: Yes (Hospitalization, Other)
  Sender: FDA-Public Use
  Company Number: CHPA2012US019872

PATIENT
  Age: 80 Year
  Sex: Female

DRUGS (4)
  1. EX-LAX REGULAR STRENGTH CHOCOLATED STIMULANT LAXATIVE [Suspect]
     Active Substance: SENNOSIDES
     Dosage: 2 DF, ONCE A MONTH
     Route: 048
  2. EX-LAX REGULAR STRENGTH CHOCOLATED STIMULANT LAXATIVE [Suspect]
     Active Substance: SENNOSIDES
     Indication: PROPHYLAXIS
     Dosage: 2 DF, BEFORE BED WEEKLY
     Route: 048
  3. EX-LAX REGULAR STRENGTH CHOCOLATED STIMULANT LAXATIVE [Suspect]
     Active Substance: SENNOSIDES
     Dosage: UNK, ONCE/SINGLE
     Route: 048
     Dates: start: 20120911, end: 20120911
  4. EX-LAX REGULAR STRENGTH CHOCOLATED STIMULANT LAXATIVE [Suspect]
     Active Substance: SENNOSIDES
     Dosage: 2 DF, BEFORE BED WEEKLY
     Route: 048

REACTIONS (14)
  - Memory impairment [Not Recovered/Not Resolved]
  - Incorrect product storage [Unknown]
  - Back pain [Not Recovered/Not Resolved]
  - Therapeutic response decreased [Unknown]
  - Pain in extremity [Recovered/Resolved]
  - Mobility decreased [Recovered/Resolved]
  - Post procedural complication [Recovered/Resolved]
  - Malaise [Recovered/Resolved]
  - Muscle spasms [Recovered/Resolved]
  - Mass [Recovered/Resolved]
  - Spinal fracture [Recovered/Resolved]
  - Thrombosis [Recovered/Resolved]
  - Fall [Recovered/Resolved]
  - Off label use [Unknown]

NARRATIVE: CASE EVENT DATE: 2007
